FAERS Safety Report 7312575-3 (Version None)
Quarter: 2011Q1

REPORT INFORMATION
  Report Type: 
  Country: None (occurrence: None)
  Receive Date: 20110224
  Receipt Date: 20110120
  Transmission Date: 20110831
  Serious: Yes (Disabling)
  Sender: FDA-Public Use
  Company Number: PHHY2011US04783

PATIENT
  Sex: Female

DRUGS (1)
  1. RECLAST [Suspect]
     Dosage: 5 MG, 1 YEARLY
     Route: 042
     Dates: start: 20110119, end: 20110119

REACTIONS (3)
  - BEDRIDDEN [None]
  - NAUSEA [None]
  - PYREXIA [None]
